FAERS Safety Report 7527326-7 (Version None)
Quarter: 2011Q2

REPORT INFORMATION
  Report Type: 
  Country: None (occurrence: None)
  Receive Date: 20110607
  Receipt Date: 20110525
  Transmission Date: 20111010
  Serious: Yes (Hospitalization)
  Sender: FDA-Public Use
  Company Number: US-BAYER-201033153NA

PATIENT
  Age: 50 Year
  Sex: Female
  Weight: 83.9 kg

DRUGS (16)
  1. COUMADIN [Concomitant]
     Dosage: UNK
     Dates: start: 20070802
  2. PREDNISONE [Concomitant]
     Dosage: UNK
     Dates: start: 19970101
  3. SANCTURA [Concomitant]
     Dosage: UNK
     Dates: start: 19970101
  4. POTASSIUM [POTASSIUM] [Concomitant]
     Dosage: UNK UNK, QD
  5. LEXAPRO [Concomitant]
     Dosage: UNK
     Dates: start: 19970101
  6. LASIX [Concomitant]
     Dosage: UNK UNK, QD
  7. YAZ [Suspect]
     Indication: PRODUCT USED FOR UNKNOWN INDICATION
     Dosage: UNK UNK, QD
     Route: 048
     Dates: start: 20070401, end: 20070501
  8. ALPRAZOLAM [Concomitant]
     Dosage: UNK
     Dates: start: 19970101
  9. PROTONIX [Concomitant]
     Dosage: UNK
     Dates: start: 19970101
  10. LOVENOX [Concomitant]
     Dosage: 120 MG, UNK
     Route: 058
     Dates: start: 19970101
  11. PAIN MEDICATION [Concomitant]
     Indication: PAIN
     Dosage: UNK UNK, TID
  12. BUPROPION HYDROCHLORIDE [Concomitant]
     Dosage: 300 MG, UNK
  13. ORTHO-PILL [Concomitant]
     Dosage: UNK
  14. NEXIUM [Concomitant]
     Indication: GASTROOESOPHAGEAL REFLUX DISEASE
     Dosage: UNK
     Dates: start: 19970101
  15. AMOXICILLIN [Concomitant]
     Dosage: UNK
     Dates: start: 19970101
  16. DARVOCET [Concomitant]
     Dosage: UNK
     Dates: start: 19970101

REACTIONS (4)
  - JOINT SWELLING [None]
  - OEDEMA PERIPHERAL [None]
  - THROMBOSIS [None]
  - PAIN IN EXTREMITY [None]
